FAERS Safety Report 13591895 (Version 1)
Quarter: 2017Q2

REPORT INFORMATION
  Report Type: Spontaneous
  Country: MX (occurrence: MX)
  Receive Date: 20170530
  Receipt Date: 20170530
  Transmission Date: 20170830
  Serious: Yes (Other)
  Sender: FDA-Public Use
  Company Number: MX-PFIZER INC-2017231389

PATIENT
  Age: 52 Year
  Sex: Female

DRUGS (7)
  1. METHOTREXATE. [Concomitant]
     Active Substance: METHOTREXATE
  2. AZULFIDINE [Suspect]
     Active Substance: SULFASALAZINE
     Indication: ANKYLOSING SPONDYLITIS
     Dosage: 2 DF, DAILY FOR ONE WEEK
  3. CELEBREX [Concomitant]
     Active Substance: CELECOXIB
     Dosage: 400 MG, DAILY  AS NEEDED, DEPENDS ON PAIN
  4. AZULFIDINE [Suspect]
     Active Substance: SULFASALAZINE
     Dosage: 1 DF, 2X/DAY
     Dates: start: 2016
  5. CELEBREX [Concomitant]
     Active Substance: CELECOXIB
     Indication: PAIN
     Dosage: 200 MG, DAILY AS NEEDED, DEPENDS ON PAIN
  6. AZULFIDINE [Suspect]
     Active Substance: SULFASALAZINE
     Dosage: 3 DF, DAILY FOR 6 MONTHS
  7. AZULFIDINE [Suspect]
     Active Substance: SULFASALAZINE
     Dosage: 2 DF, 2X/DAY

REACTIONS (5)
  - Mental impairment [Unknown]
  - Drug prescribing error [Unknown]
  - Confusional state [Unknown]
  - Feeling abnormal [Unknown]
  - Dizziness [Unknown]
